FAERS Safety Report 7892802-4 (Version None)
Quarter: 2011Q4

REPORT INFORMATION
  Report Type: 
  Country: None (occurrence: None)
  Receive Date: 20111104
  Receipt Date: 20111031
  Transmission Date: 20120403
  Serious: Yes (Death, Life-Threatening, Other)
  Sender: FDA-Public Use
  Company Number: JP-GENZYME-FLUD-1000367

PATIENT
  Sex: Female
  Weight: 13 kg

DRUGS (24)
  1. HEPARIN [Concomitant]
     Indication: PROPHYLAXIS
     Dosage: UNK
     Route: 065
     Dates: start: 20090521, end: 20090806
  2. ACYCLOVIR [Concomitant]
     Indication: ANTIVIRAL PROPHYLAXIS
     Dosage: UNK
     Route: 065
     Dates: start: 20090522, end: 20090623
  3. MICAFUNGIN SODIUM [Concomitant]
     Dosage: UNK
     Route: 065
     Dates: start: 20090920, end: 20090927
  4. METHYLPREDNISOLONE SODIUM SUCCINATE [Concomitant]
     Indication: PREMEDICATION
     Dosage: UNK
     Route: 065
     Dates: start: 20090525, end: 20090605
  5. HYDROXYZINE [Concomitant]
     Indication: ANAPHYLAXIS PROPHYLAXIS
     Dosage: UNK
     Route: 065
     Dates: start: 20090527, end: 20090527
  6. FLUDARA [Suspect]
     Indication: NEUROBLASTOMA RECURRENT
     Dosage: 18 MG INJECTION, QDX4
     Route: 042
     Dates: start: 20090522, end: 20090525
  7. MICAFUNGIN SODIUM [Concomitant]
  8. METHOTREXATE [Concomitant]
     Indication: PROPHYLAXIS AGAINST GRAFT VERSUS HOST DISEASE
     Dosage: UNK
     Route: 065
     Dates: start: 20090528, end: 20090528
  9. METHOTREXATE [Concomitant]
     Dosage: UNK
     Route: 065
     Dates: start: 20090602, end: 20090602
  10. THYMOGLOBULIN [Suspect]
     Indication: BONE MARROW CONDITIONING REGIMEN
     Dosage: 32.5 MG, QD
     Route: 042
     Dates: start: 20090525, end: 20090526
  11. ACETAMINOPHEN [Concomitant]
     Indication: PREMEDICATION
     Dosage: UNK
     Route: 065
     Dates: start: 20090525, end: 20090526
  12. GRANISETRON HCL [Concomitant]
     Indication: PROPHYLAXIS OF NAUSEA AND VOMITING
     Dosage: UNK
     Route: 065
     Dates: start: 20090522, end: 20090525
  13. LENOGRASTIM [Concomitant]
     Indication: PROPHYLAXIS
     Dosage: UNK
     Route: 065
     Dates: start: 20090522, end: 20090526
  14. IMMUNOGLOBULIN HUMAN NORMAL [Concomitant]
     Indication: ANTIVIRAL PROPHYLAXIS
     Dosage: UNK
     Route: 065
     Dates: start: 20090528, end: 20090909
  15. ALPROSTADIL [Concomitant]
     Indication: PROPHYLAXIS
     Dosage: UNK
     Route: 065
     Dates: start: 20090521, end: 20090805
  16. MESNA [Concomitant]
     Indication: PROPHYLAXIS
     Dosage: UNK
     Route: 065
     Dates: start: 20090522, end: 20090525
  17. CYCLOPHOSPHAMIDE [Concomitant]
     Indication: NEUROBLASTOMA RECURRENT
     Dosage: UNK
     Route: 065
     Dates: start: 20090522, end: 20090525
  18. FUROSEMIDE [Concomitant]
     Indication: PROPHYLAXIS
     Dosage: UNK
     Route: 065
     Dates: start: 20090522, end: 20090525
  19. MICAFUNGIN SODIUM [Concomitant]
     Indication: ANTIFUNGAL PROPHYLAXIS
     Dosage: UNK
     Route: 065
     Dates: start: 20090522, end: 20090617
  20. MICAFUNGIN SODIUM [Concomitant]
     Dosage: UNK
     Route: 065
     Dates: start: 20091003, end: 20091211
  21. TACROLIMUS [Concomitant]
     Indication: PROPHYLAXIS AGAINST GRAFT VERSUS HOST DISEASE
     Dosage: UNK
     Route: 065
     Dates: start: 20090525, end: 20090711
  22. TRIMETHOPRIM + SULFAMETHOXAZOLE [Concomitant]
     Indication: ANTIFUNGAL PROPHYLAXIS
     Dosage: UNK
     Route: 065
     Dates: start: 20090710, end: 20090923
  23. MICAFUNGIN SODIUM [Concomitant]
     Dosage: UNK
     Route: 065
     Dates: start: 20090920, end: 20090927
  24. FOSUFLUCONAZOLE [Concomitant]
     Indication: ANTIFUNGAL PROPHYLAXIS
     Dosage: UNK
     Dates: start: 20090915, end: 20090920

REACTIONS (16)
  - CANCER PAIN [None]
  - HYPOALBUMINAEMIA [None]
  - PRURITUS [None]
  - ORAL CANDIDIASIS [None]
  - HYPERTENSION [None]
  - SEPSIS [None]
  - INFECTION [None]
  - PANCREATIC CARCINOMA METASTATIC [None]
  - GASTRITIS [None]
  - BRONCHITIS [None]
  - CYTOMEGALOVIRUS TEST POSITIVE [None]
  - BRONCHOPULMONARY ASPERGILLOSIS [None]
  - NEUTROPENIA [None]
  - ANTITHROMBIN III DECREASED [None]
  - DIARRHOEA [None]
  - OEDEMA [None]
